FAERS Safety Report 25068279 (Version 1)
Quarter: 2025Q1

REPORT INFORMATION
  Report Type: Report from Study
  Country: US (occurrence: US)
  Receive Date: 20250312
  Receipt Date: 20250312
  Transmission Date: 20250408
  Serious: No
  Sender: GRIFOLS
  Company Number: US-IGSA-BIG0033416

PATIENT

DRUGS (24)
  1. GAMUNEX-C [Suspect]
     Active Substance: HUMAN IMMUNOGLOBULIN G
     Indication: Von Willebrand^s disease
     Dosage: 43 GRAM, Q.4WK.
     Route: 042
     Dates: start: 20250225
  2. GAMUNEX-C [Suspect]
     Active Substance: HUMAN IMMUNOGLOBULIN G
     Indication: Off label use
     Dosage: 43 GRAM, Q.4WK.
     Route: 042
  3. BENADRYL [Concomitant]
     Active Substance: DIPHENHYDRAMINE HYDROCHLORIDE
     Indication: Premedication
  4. AMPHETAMINE [Concomitant]
     Active Substance: AMPHETAMINE
  5. ASPIRIN [Concomitant]
     Active Substance: ASPIRIN
  6. BACLOFEN [Concomitant]
     Active Substance: BACLOFEN
  7. DULOXETINE HYDROCHLORIDE [Concomitant]
     Active Substance: DULOXETINE HYDROCHLORIDE
  8. GABAPENTIN [Concomitant]
     Active Substance: GABAPENTIN
  9. HYDROCODONE [Concomitant]
     Active Substance: HYDROCODONE
  10. LORAZEPAM [Concomitant]
     Active Substance: LORAZEPAM
  11. LOSARTAN POTASSIUM [Concomitant]
     Active Substance: LOSARTAN POTASSIUM
  12. MAGNESIUM [Concomitant]
     Active Substance: MAGNESIUM
  13. MONTELUKAST [Concomitant]
     Active Substance: MONTELUKAST
  14. VITAMINS [Concomitant]
     Active Substance: VITAMINS
  15. OMEPRAZOLE [Concomitant]
     Active Substance: OMEPRAZOLE
  16. ONDANSETRON [Concomitant]
     Active Substance: ONDANSETRON
  17. PROAIR HFA [Concomitant]
     Active Substance: ALBUTEROL SULFATE
  18. RIZATRIPTAN [Concomitant]
     Active Substance: RIZATRIPTAN
  19. SOLIFENACIN [Concomitant]
     Active Substance: SOLIFENACIN
  20. VALACYCLOVIR HYDROCHLORIDE [Concomitant]
     Active Substance: VALACYCLOVIR HYDROCHLORIDE
  21. VENTOLIN HFA [Concomitant]
     Active Substance: ALBUTEROL SULFATE
  22. VERAPAMIL HCL [Concomitant]
     Active Substance: VERAPAMIL HYDROCHLORIDE
  23. VITAMIN C [Concomitant]
     Active Substance: ASCORBIC ACID
  24. ZINC [Concomitant]
     Active Substance: ZINC

REACTIONS (1)
  - Pruritus [Recovered/Resolved]

NARRATIVE: CASE EVENT DATE: 20250225
